FAERS Safety Report 9280202 (Version 1)
Quarter: 2012Q4

REPORT INFORMATION
  Report Type: Spontaneous
  Country: FR (occurrence: None)
  Receive Date: 20120914
  Receipt Date: 20120914
  Transmission Date: 20130627
  Serious: Yes (Death, Life-Threatening, Hospitalization)
  Sender: FDA-Public Use
  Company Number: 2012SGN00340

PATIENT
  Age: 32 Year
  Sex: Female
  Weight: 83 kg

DRUGS (1)
  1. BRENTUXIMAB VEDOTIN [Suspect]
     Indication: HODGKIN^S LYMPHOMA
     Route: 042
     Dates: start: 20120717, end: 20120717

REACTIONS (6)
  - Pancreatitis acute [None]
  - Acute respiratory distress syndrome [None]
  - General physical health deterioration [None]
  - Liver disorder [None]
  - Cell death [None]
  - Herpes zoster [None]
